APPROVED DRUG PRODUCT: MONTELUKAST SODIUM
Active Ingredient: MONTELUKAST SODIUM
Strength: EQ 4MG BASE/PACKET
Dosage Form/Route: GRANULE;ORAL
Application: A202776 | Product #001
Applicant: PHARMOBEDIENT CONSULTING LLC
Approved: Dec 18, 2012 | RLD: No | RS: No | Type: DISCN